FAERS Safety Report 8259914-7 (Version None)
Quarter: 2012Q2

REPORT INFORMATION
  Report Type: 
  Country: None (occurrence: None)
  Receive Date: 20120404
  Receipt Date: 20120326
  Transmission Date: 20120825
  Serious: Yes (Hospitalization)
  Sender: FDA-Public Use
  Company Number: US-ABBOTT-12P-163-0918903-00

PATIENT
  Sex: Female

DRUGS (4)
  1. HUMIRA [Suspect]
  2. HUMIRA [Suspect]
     Indication: CROHN'S DISEASE
     Dosage: (160MG LOADING DOSE)
     Dates: start: 20120225, end: 20120225
  3. HUMIRA [Suspect]
     Dosage: (80MG)
     Dates: start: 20120310, end: 20120310
  4. METHOTREXATE [Concomitant]
     Indication: CROHN'S DISEASE

REACTIONS (3)
  - GASTROINTESTINAL INFECTION [None]
  - SOMNOLENCE [None]
  - GASTROINTESTINAL INFLAMMATION [None]
